FAERS Safety Report 17799007 (Version 1)
Quarter: 2020Q2

REPORT INFORMATION
  Report Type: Spontaneous
  Country: ES (occurrence: ES)
  Receive Date: 20200518
  Receipt Date: 20200518
  Transmission Date: 20200714
  Serious: Yes (Hospitalization)
  Sender: FDA-Public Use
  Company Number: ES-TEVA-2020-ES-1235779

PATIENT
  Age: 48 Year
  Sex: Male

DRUGS (5)
  1. HIDROXICLOROQUINA (2143A) [Suspect]
     Active Substance: HYDROXYCHLOROQUINE
     Indication: CORONAVIRUS INFECTION
  2. PARACETAMOL (12A) [Suspect]
     Active Substance: ACETAMINOPHEN
     Indication: PYREXIA
     Dosage: 3 GRAM DAILY; 1GR EVERY 8 HOURS
     Route: 048
     Dates: start: 20200326, end: 20200407
  3. CEFDITORENO PIVOXILO (7358PS) [Suspect]
     Active Substance: CEFDITOREN PIVOXIL
     Indication: PNEUMONIA
  4. HIDROXICLOROQUINA (2143A) [Suspect]
     Active Substance: HYDROXYCHLOROQUINE
     Indication: PNEUMONIA
     Dosage: 400 MG DAY
     Route: 048
     Dates: start: 20200326, end: 20200401
  5. CEFDITORENO PIVOXILO (7358PS) [Suspect]
     Active Substance: CEFDITOREN PIVOXIL
     Indication: CORONAVIRUS INFECTION
     Dosage: 800 MILLIGRAM DAILY; 400 MG EVERY 12 HOURS
     Route: 048
     Dates: start: 20200326, end: 20200401

REACTIONS (1)
  - Hepatitis [Unknown]

NARRATIVE: CASE EVENT DATE: 20200407
